FAERS Safety Report 20812061 (Version 1)
Quarter: 2022Q2

REPORT INFORMATION
  Report Type: Spontaneous
  Country: FR (occurrence: FR)
  Receive Date: 20220511
  Receipt Date: 20220511
  Transmission Date: 20220720
  Serious: Yes (Hospitalization)
  Sender: FDA-Public Use
  Company Number: FR-AFSSAPS-MP20221489

PATIENT
  Age: 60 Year
  Sex: Male
  Weight: 80 kg

DRUGS (6)
  1. VALACYCLOVIR [Suspect]
     Active Substance: VALACYCLOVIR HYDROCHLORIDE
     Indication: Antiviral prophylaxis
     Dosage: 500 MILLIGRAM, BID
     Route: 048
     Dates: start: 20220307, end: 20220310
  2. ELIQUIS [Suspect]
     Active Substance: APIXABAN
     Indication: Thrombosis prophylaxis
     Dosage: 1 DOSAGE FORM, BID
     Route: 048
     Dates: start: 20220307, end: 20220310
  3. BACTRIM [Suspect]
     Active Substance: SULFAMETHOXAZOLE\TRIMETHOPRIM
     Indication: Antibiotic prophylaxis
     Dosage: 1 DOSAGE FORM, 3 TABLETS PER WEEK (MONDAY, WEDNESDAY AND FRIDAY)
     Route: 048
     Dates: start: 20220307, end: 20220310
  4. REVLIMID [Suspect]
     Active Substance: LENALIDOMIDE
     Indication: Cryoglobulinaemia
     Dosage: 25 MILLIGRAM, DAILY, 21 DAYS OUT OF 28
     Route: 048
     Dates: start: 20220307, end: 20220310
  5. SPIKEVAX [Concomitant]
     Active Substance: ELASOMERAN
     Indication: COVID-19 immunisation
     Dosage: 1 DOSAGE FORM, DAILY, R1 (NO DETAILS REGARDING D1 AND D2)
     Route: 030
     Dates: start: 20220107, end: 20220107
  6. SPIKEVAX [Concomitant]
     Active Substance: ELASOMERAN
     Indication: COVID-19 immunisation

REACTIONS (2)
  - Purpura [Recovered/Resolved]
  - Rash [Recovered/Resolved]

NARRATIVE: CASE EVENT DATE: 20220307
